FAERS Safety Report 14683892 (Version 1)
Quarter: 2018Q1

REPORT INFORMATION
  Report Type: Other
  Country: JP (occurrence: JP)
  Receive Date: 20180327
  Receipt Date: 20180327
  Transmission Date: 20180509
  Serious: Yes (Other)
  Sender: FDA-Public Use
  Company Number: JP-WES PHARMA INC-2044601

PATIENT
  Age: 52 Year
  Sex: Male

DRUGS (6)
  1. TRAMADOL. [Concomitant]
     Active Substance: TRAMADOL
     Route: 065
  2. OXYCODONE HYDROCHLORIDE. [Suspect]
     Active Substance: OXYCODONE HYDROCHLORIDE
     Indication: CANCER PAIN
     Route: 048
  3. PREGABALIN. [Concomitant]
     Active Substance: PREGABALIN
     Route: 065
  4. CELECOXIB. [Concomitant]
     Active Substance: CELECOXIB
     Route: 065
  5. BEVACIZUMAB. [Concomitant]
     Active Substance: BEVACIZUMAB
     Route: 065
  6. FOLOFOX REGIMEN (FOLINIC ACID, FLUOROURACIL AND OXALIPLATIN) [Concomitant]
     Route: 065

REACTIONS (1)
  - Gastric ulcer [Unknown]
